FAERS Safety Report 9498728 (Version 1)
Quarter: 2013Q3

REPORT INFORMATION
  Report Type: Spontaneous
  Country: FR (occurrence: None)
  Receive Date: 20130830
  Receipt Date: 20130830
  Transmission Date: 20140515
  Serious: Yes (Death)
  Sender: FDA-Public Use
  Company Number: 7233217

PATIENT
  Age: 87 Year
  Sex: Male

DRUGS (12)
  1. LEVOTHYROX [Suspect]
     Indication: HYPOTHYROIDISM
     Dosage: 1 DF (1DF,1 IN- 2)?LONG TIME- 20-MAR-2013
     Route: 048
     Dates: end: 20130320
  2. PARACETAMOL [Suspect]
     Indication: PAIN
     Dosage: 6 DF (2 DF,3 IN 1 D)
     Dates: end: 201303
  3. PERFALGAN [Suspect]
     Indication: PAIN
     Dosage: (NOT OTHERWISE SPECIFIED)
     Route: 042
     Dates: start: 20130317, end: 20130321
  4. LASILIX [Suspect]
     Indication: HYPERTENSION
     Dosage: 1 DF (1 DB, 1 IN 1 D)
     Route: 048
     Dates: end: 20130318
  5. AMIODARONE [Suspect]
     Indication: ARRHYTHMIA
     Dosage: 1 DF (1 DF, 1 IN 1 D)
     Route: 048
     Dates: end: 20130320
  6. KARDEGIC [Suspect]
     Indication: PLATELET AGGREGATION INHIBITION
     Dates: end: 20130320
  7. PERINDOPRIL [Suspect]
     Indication: HYPERTENSION
     Dates: end: 20130318
  8. ZOLPIDEM [Suspect]
     Indication: INSOMNIA
     Dosage: 0.5 DF (0.5 DF, 1 IN 1 D)
     Route: 048
     Dates: end: 20130318
  9. PANTOPRAZOLE [Suspect]
     Indication: PROPHYLAXIS
     Dosage: 1 DF (1 DF, 1 IN 1 D)
     Dates: end: 20130320
  10. SPECIAFOLDINE [Suspect]
     Indication: FOLATE DEFICIENCY
     Dosage: 5 MG (5 MG, 1 IN 1 D)
     Route: 048
     Dates: end: 20130320
  11. ALFUZOSIN [Suspect]
     Indication: PRODUCT USED FOR UNKNOWN INDICATION
     Dosage: 1 DF (1 DF)
     Dates: end: 20130312
  12. AUGMENTIN [Suspect]
     Indication: PRODUCT USED FOR UNKNOWN INDICATION
     Route: 048
     Dates: start: 20130313, end: 20130317

REACTIONS (14)
  - Hepatic enzyme increased [None]
  - Analgesic drug level increased [None]
  - Pain [None]
  - Fall [None]
  - Cardiac failure [None]
  - Renal failure chronic [None]
  - Cell death [None]
  - Somnolence [None]
  - Wheezing [None]
  - Lung infection [None]
  - Hepatomegaly [None]
  - Toxicity to various agents [None]
  - Hepatotoxicity [None]
  - Hyponatraemia [None]
